FAERS Safety Report 9128025 (Version 2)
Quarter: 2013Q2

REPORT INFORMATION
  Report Type: Spontaneous
  Country: US (occurrence: US)
  Receive Date: 20130228
  Receipt Date: 20130403
  Transmission Date: 20140414
  Serious: No
  Sender: FDA-Public Use
  Company Number: US-PFIZER INC-2013070742

PATIENT
  Age: 61 Year
  Sex: Male
  Weight: 79.4 kg

DRUGS (3)
  1. CELEBREX [Suspect]
     Indication: ARTHRALGIA
     Dosage: 200 MG, 2X/DAY
     Dates: start: 2013
  2. CELEBREX [Suspect]
     Indication: INFLAMMATION
  3. TELMISARTAN [Concomitant]
     Indication: HYPERTENSION
     Dosage: 12 MG, 1X/DAY

REACTIONS (2)
  - Muscle twitching [Not Recovered/Not Resolved]
  - Muscle spasms [Not Recovered/Not Resolved]
